FAERS Safety Report 8453144-1 (Version None)
Quarter: 2012Q2

REPORT INFORMATION
  Report Type: 
  Country: None (occurrence: None)
  Receive Date: 20120620
  Receipt Date: 20120509
  Transmission Date: 20120825
  Serious: No
  Sender: FDA-Public Use
  Company Number: US-VERTEX PHARMACEUTICALS INC.-AE-2012-006767

PATIENT
  Sex: Male
  Weight: 73.548 kg

DRUGS (3)
  1. PEGASYS [Concomitant]
     Indication: HEPATITIS C
     Route: 058
     Dates: start: 20120216
  2. INCIVEK [Suspect]
     Indication: HEPATITIS C
     Route: 048
     Dates: start: 20120216, end: 20120509
  3. RIBAVIRIN [Concomitant]
     Indication: HEPATITIS C
     Route: 048
     Dates: start: 20120216

REACTIONS (7)
  - FATIGUE [None]
  - STOMATITIS [None]
  - ANAEMIA [None]
  - NAUSEA [None]
  - CHILLS [None]
  - DYSGEUSIA [None]
  - PRURITUS [None]
